FAERS Safety Report 6659771-6 (Version None)
Quarter: 2010Q1

REPORT INFORMATION
  Report Type: 
  Country: None (occurrence: None)
  Receive Date: 20100330
  Receipt Date: 20100325
  Transmission Date: 20100710
  Serious: Yes (Other)
  Sender: FDA-Public Use
  Company Number: FR-MERCK-1003FRA00110

PATIENT
  Age: 24 Year
  Sex: Male

DRUGS (2)
  1. SINGULAIR [Suspect]
     Indication: ASTHMA
     Route: 048
     Dates: start: 20100101, end: 20100101
  2. LAMOTRIGINE [Concomitant]
     Indication: EPILEPSY
     Route: 048

REACTIONS (1)
  - EPILEPSY [None]
